FAERS Safety Report 24090072 (Version 1)
Quarter: 2024Q3

REPORT INFORMATION
  Report Type: Spontaneous
  Country: US (occurrence: None)
  Receive Date: 20240712
  Receipt Date: 20240712
  Transmission Date: 20241017
  Serious: No
  Sender: Public
  Company Number: None

PATIENT
  Age: 76 Year
  Sex: 0

DRUGS (1)
  1. AMBRISENTAN [Suspect]
     Active Substance: AMBRISENTAN
     Indication: Pulmonary arterial hypertension
     Dosage: 5 MG DAILY ORAL
     Route: 048

REACTIONS (7)
  - Atrial fibrillation [None]
  - Swelling [None]
  - Cough [None]
  - Productive cough [None]
  - Dyspnoea exertional [None]
  - Peripheral swelling [None]
  - Gastrointestinal disorder [None]

NARRATIVE: CASE EVENT DATE: 20240712
